FAERS Safety Report 6729667-X (Version None)
Quarter: 2010Q2

REPORT INFORMATION
  Report Type: 
  Country: None (occurrence: None)
  Receive Date: 20100518
  Receipt Date: 20100510
  Transmission Date: 20101027
  Serious: Yes (Other)
  Sender: FDA-Public Use
  Company Number: FR-JNJFOC-20100502712

PATIENT
  Sex: Male

DRUGS (6)
  1. IMODIUM [Suspect]
     Indication: DIARRHOEA
     Route: 048
     Dates: start: 20100412, end: 20100414
  2. ERCEFURYL [Suspect]
     Indication: DIARRHOEA
     Route: 048
     Dates: start: 20100412, end: 20100414
  3. TRILEPTAL [Concomitant]
     Indication: EPILEPSY
  4. URBANYL [Concomitant]
     Indication: EPILEPSY
  5. RIVOTRIL [Concomitant]
     Indication: EPILEPSY
  6. IMMUNE GLOBULIN INTRAVENOUS (HUMAN) [Concomitant]
     Indication: NEUROPATHY PERIPHERAL

REACTIONS (2)
  - INTENTIONAL DRUG MISUSE [None]
  - TOXIC SKIN ERUPTION [None]
